FAERS Safety Report 10019716 (Version 3)
Quarter: 2014Q2

REPORT INFORMATION
  Report Type: Spontaneous
  Country: US (occurrence: US)
  Receive Date: 20140318
  Receipt Date: 20140618
  Transmission Date: 20141212
  Serious: No
  Sender: FDA-Public Use
  Company Number: US-GALDERMA-US14000405

PATIENT
  Age: 56 Year
  Sex: Female

DRUGS (4)
  1. MIRVASO (BRIMONIDINE) TOPICAL GEL, 0.33% [Suspect]
     Indication: ROSACEA
     Dosage: 0.33%
     Route: 061
     Dates: start: 201310, end: 201310
  2. INTELLISHADE [Concomitant]
     Indication: THERAPEUTIC SKIN CARE TOPICAL
     Dates: start: 201212
  3. FINACEA [Concomitant]
     Indication: ROSACEA
     Dates: start: 2012
  4. DOVE SOAP [Concomitant]

REACTIONS (4)
  - Rash maculovesicular [Recovered/Resolved]
  - Blister [Recovered/Resolved]
  - Rash pruritic [Recovered/Resolved]
  - Dermatitis contact [Recovered/Resolved]
